FAERS Safety Report 10361813 (Version 1)
Quarter: 2014Q1

REPORT INFORMATION
  Report Type: Spontaneous
  Country: US (occurrence: None)
  Receive Date: 20140306
  Receipt Date: 20140306
  Transmission Date: 20141002
  Serious: Yes (Other)
  Sender: FDA-Public Use
  Company Number: 163-21880-13072700

PATIENT
  Age: 84 Year
  Sex: Male
  Weight: 86.64 kg

DRUGS (6)
  1. REVLIMID [Suspect]
     Indication: PLASMA CELL MYELOMA
     Dosage: 15-5-10-25 MG, 21 IN 28 D, PO
     Route: 048
     Dates: start: 201305
  2. ALLOPURINOL (ALLOPURINOL) (UNKNOWN) [Concomitant]
  3. AMLODIPINE (AMLODIPINE) (UNKNOWN) [Concomitant]
  4. CARVEDILOL (CARVEDILOL) (UNKNOWN) [Concomitant]
  5. GLIPIZIDE (GLIPIZIDE) (UNKNOWN) [Concomitant]
  6. LEVOTHYROXINE (LEVOTHYROXINE) (UNKNOWN) [Concomitant]

REACTIONS (11)
  - Red blood cell count decreased [None]
  - Dysstasia [None]
  - Gout [None]
  - Confusional state [None]
  - Weight decreased [None]
  - Decreased appetite [None]
  - Dyspnoea [None]
  - Cough [None]
  - Hyperhidrosis [None]
  - Renal impairment [None]
  - Fatigue [None]
